FAERS Safety Report 21424435 (Version 1)
Quarter: 2022Q4

REPORT INFORMATION
  Report Type: Spontaneous
  Country: US (occurrence: US)
  Receive Date: 20221007
  Receipt Date: 20221007
  Transmission Date: 20230113
  Serious: Yes (Other)
  Sender: FDA-Public Use
  Company Number: US-FreseniusKabi-FK202213652

PATIENT
  Age: 8 Year
  Sex: Male

DRUGS (5)
  1. HYDROXYZINE HYDROCHLORIDE [Suspect]
     Active Substance: HYDROXYZINE HYDROCHLORIDE
     Indication: Product used for unknown indication
  2. ETOPOSIDE [Suspect]
     Active Substance: ETOPOSIDE
     Indication: Neoplasm
     Dosage: FOLLOWED BY AUTOLOGOUS STEM CELL RESCUE TO FACILITATE COUNT RECOVERY
  3. CARBOPLATIN [Suspect]
     Active Substance: CARBOPLATIN
     Indication: Neoplasm
     Dosage: FOLLOWED BY AUTOLOGOUS STEM CELL RESCUE TO FACILITATE COUNT RECOVERY
  4. THIOTEPA [Suspect]
     Active Substance: THIOTEPA
     Indication: Neoplasm
     Dosage: FOLLOWED BY AUTOLOGOUS STEM CELL RESCUE TO FACILITATE COUNT RECOVERY
  5. PROMETHAZINE [Suspect]
     Active Substance: PROMETHAZINE HYDROCHLORIDE
     Indication: Product used for unknown indication

REACTIONS (6)
  - Clostridium difficile colitis [Unknown]
  - Engraftment syndrome [Unknown]
  - Dystonia [Recovered/Resolved]
  - Electrolyte imbalance [Unknown]
  - Feeding disorder [Unknown]
  - Drug interaction [Unknown]
